FAERS Safety Report 18681088 (Version 2)
Quarter: 2022Q3

REPORT INFORMATION
  Report Type: Report from Study
  Country: US (occurrence: US)
  Receive Date: 20201229
  Receipt Date: 20220929
  Transmission Date: 20221026
  Serious: Yes (Other)
  Sender: FDA-Public Use
  Company Number: US-BIOGEN-2020BI00959995

PATIENT
  Sex: Female

DRUGS (11)
  1. SPINRAZA [Suspect]
     Active Substance: NUSINERSEN
     Indication: Spinal muscular atrophy
     Route: 050
     Dates: start: 201801, end: 202012
  2. SPINRAZA [Suspect]
     Active Substance: NUSINERSEN
     Route: 050
     Dates: start: 20220216
  3. BETAMETHASONE VALERATE 0.12% [Concomitant]
     Indication: Product used for unknown indication
     Dosage: APPLY SMALL AMOUNT OF FOAM TO SCALP TWICE A DAY (PATIENT NOT TAKING)
     Route: 050
     Dates: start: 20220114
  4. CLONAZEPAM [Concomitant]
     Active Substance: CLONAZEPAM
     Indication: Product used for unknown indication
     Dosage: TAKE 2 TABS EVERY OTHER DAY ALONG WITH THREE 0.5 MG TABLETS FOR TOTAL OF 5.5 MG EVERY OTHER DAY (...
     Route: 050
     Dates: start: 20210108
  5. KETOCONAZOLE [Concomitant]
     Active Substance: KETOCONAZOLE
     Indication: Product used for unknown indication
     Dosage: SHAMPOO DAILY LEAVE ON FOR 5-10 MINS THEN RINSE
     Route: 050
     Dates: start: 20220127
  6. NARCAN [Concomitant]
     Active Substance: NALOXONE HYDROCHLORIDE
     Indication: Product used for unknown indication
     Dosage: SPRAY 0.1 ML (4 MG) UNTO ONE NOSTRIL FOR SUSPECTED OVERDOSE. REPEAT INTO OTHER NOSTRIL AFTER 2 TO...
     Route: 050
     Dates: start: 20190114
  7. PHENERGAN [Concomitant]
     Active Substance: PROMETHAZINE HYDROCHLORIDE
     Indication: Product used for unknown indication
     Dosage: TAKE 25 MG BY MOUTH EVERY 6 HRS AS NEEDED
     Route: 050
     Dates: start: 20211019
  8. RISPERDAL [Concomitant]
     Active Substance: RISPERIDONE
     Indication: Product used for unknown indication
     Dosage: TAKE 1 TABLET (1 MG TOTAL) BY MOUTH 2 TIMES A DAY
     Route: 050
     Dates: start: 20220321
  9. ALDACTONE [Concomitant]
     Active Substance: SPIRONOLACTONE
     Indication: Product used for unknown indication
     Dosage: TAKE 50 MG BY MOUTH 2 TIMES A DAY
     Route: 050
  10. BELSOMRA [Concomitant]
     Active Substance: SUVOREXANT
     Indication: Product used for unknown indication
     Dosage: TAKE 1 TAB (20 MG TOTAL) BY MOUTH EVERY BEDTIME
     Route: 050
     Dates: start: 20201212
  11. EFFEXOR [Concomitant]
     Active Substance: VENLAFAXINE HYDROCHLORIDE
     Indication: Product used for unknown indication
     Dosage: TAKE 1 TAB (25 MG TOTAL) BY MOUTH 3 TIMES A DAY
     Route: 050
     Dates: start: 20220321

REACTIONS (6)
  - General physical health deterioration [Not Recovered/Not Resolved]
  - Pelvic pain [Unknown]
  - Arthralgia [Unknown]
  - Muscular weakness [Unknown]
  - Asthenia [Unknown]
  - Back pain [Unknown]

NARRATIVE: CASE EVENT DATE: 20200101
